FAERS Safety Report 4791939-6 (Version None)
Quarter: 2005Q4

REPORT INFORMATION
  Report Type: 
  Country: None (occurrence: None)
  Receive Date: 20051007
  Receipt Date: 20050927
  Transmission Date: 20060501
  Serious: Yes (Death)
  Sender: FDA-Public Use
  Company Number: RU-ABBOTT-05P-251-0312350-00

PATIENT
  Age: 1 Year

DRUGS (1)
  1. SEVORANE [Suspect]
     Indication: ANAESTHESIA
     Dosage: NOT REPORTED
     Route: 055
     Dates: start: 20050926, end: 20050926

REACTIONS (1)
  - CARDIAC ARREST [None]
